FAERS Safety Report 21567163 (Version 1)
Quarter: 2022Q4

REPORT INFORMATION
  Report Type: Spontaneous
  Country: IT (occurrence: IT)
  Receive Date: 20221108
  Receipt Date: 20221108
  Transmission Date: 20230112
  Serious: Yes (Other)
  Sender: FDA-Public Use
  Company Number: IT-BoehringerIngelheim-2022-BI-200196

PATIENT

DRUGS (3)
  1. EMPAGLIFLOZIN [Suspect]
     Active Substance: EMPAGLIFLOZIN
     Indication: Type 2 diabetes mellitus
  2. METFORMIN [Concomitant]
     Active Substance: METFORMIN HYDROCHLORIDE
     Indication: Type 2 diabetes mellitus
  3. Basal Insulin Degludec [Concomitant]
     Indication: Type 2 diabetes mellitus

REACTIONS (5)
  - Cutaneous vasculitis [Unknown]
  - Glomerulonephritis membranoproliferative [Unknown]
  - Henoch-Schonlein purpura [Unknown]
  - Purpura [Unknown]
  - Proteinuria [Recovering/Resolving]

NARRATIVE: CASE EVENT DATE: 20200101
